FAERS Safety Report 4602035-2 (Version None)
Quarter: 2005Q2

REPORT INFORMATION
  Report Type: 
  Country: None (occurrence: None)
  Receive Date: 20050214
  Receipt Date: 20041018
  Transmission Date: 20051028
  Serious: Yes (Disabling)
  Sender: FDA-Public Use
  Company Number: 8002622

PATIENT
  Age: 40 Year
  Sex: Male

DRUGS (8)
  1. KEPPRA [Suspect]
     Indication: CONVULSION
     Dosage: 250 MG 2/D PO
     Route: 048
     Dates: start: 20030201, end: 20030101
  2. KEPPRA [Suspect]
     Indication: CONVULSION
     Dosage: 500 MG 2/D PO
     Route: 048
     Dates: start: 20030101, end: 20030415
  3. KEPPRA [Suspect]
     Indication: CONVULSION
     Dosage: 1000 MG 2/D PO
     Route: 048
     Dates: start: 20030416
  4. RISPERDAL [Concomitant]
  5. TEGRETOL [Concomitant]
  6. NEURONTIN [Concomitant]
  7. CIMETIDINE [Concomitant]
  8. ASPIRIN [Concomitant]

REACTIONS (3)
  - ASTHENIA [None]
  - DECREASED APPETITE [None]
  - SOMNOLENCE [None]
